FAERS Safety Report 7628945-X (Version None)
Quarter: 2011Q3

REPORT INFORMATION
  Report Type: 
  Country: None (occurrence: None)
  Receive Date: 20110722
  Receipt Date: 20110613
  Transmission Date: 20111222
  Serious: No
  Sender: FDA-Public Use
  Company Number: US-BAYER-2011-051384

PATIENT
  Sex: Female

DRUGS (12)
  1. EFFEXOR [Concomitant]
     Dosage: 25 MG, UNK
  2. VITAMIN D [Concomitant]
     Dosage: 1000 U, UNK
  3. BACTRIM [Concomitant]
     Dosage: 400-80 MG
  4. VALIUM [Concomitant]
     Dosage: 2 MG, UNK
  5. VITAMIN A [Concomitant]
  6. ASPIRIN [Concomitant]
     Dosage: 325 MG, UNK
  7. ASCORBIC ACID [Concomitant]
     Dosage: 100 MG, UNK
  8. PROVIGIL [Concomitant]
     Dosage: 100 MG, UNK
  9. BETASERON [Suspect]
     Indication: PRODUCT USED FOR UNKNOWN INDICATION
     Dosage: 8 MIU, QOD
     Route: 058
  10. MULTI-VITAMIN [Concomitant]
  11. TIZANIDINE HCL [Concomitant]
     Dosage: 2 MG, UNK
  12. CALCIUM D [Concomitant]

REACTIONS (1)
  - PYREXIA [None]
